FAERS Safety Report 20563405 (Version 4)
Quarter: 2024Q3

REPORT INFORMATION
  Report Type: Spontaneous
  Country: US (occurrence: US)
  Receive Date: 20220308
  Receipt Date: 20240823
  Transmission Date: 20241017
  Serious: Yes (Hospitalization, Disabling)
  Sender: ORGANON
  Company Number: US-ORGANON-O2203USA000692

PATIENT
  Sex: Female
  Weight: 86.168 kg

DRUGS (7)
  1. SINGULAIR [Suspect]
     Active Substance: MONTELUKAST SODIUM
     Indication: Asthma
     Dosage: UNK
     Route: 048
     Dates: start: 1998, end: 2023
  2. SINGULAIR [Suspect]
     Active Substance: MONTELUKAST SODIUM
     Indication: Hypersensitivity
  3. ALLEGRA [Suspect]
     Active Substance: FEXOFENADINE HYDROCHLORIDE
     Indication: Hypersensitivity
     Dosage: 180 MILLIGRAM, QD
     Dates: start: 20010209, end: 20010210
  4. ALLEGRA [Suspect]
     Active Substance: FEXOFENADINE HYDROCHLORIDE
     Indication: Angioedema
     Dosage: 180 MILLIGRAM, QD
     Dates: start: 20010209, end: 20010210
  5. ALLEGRA [Suspect]
     Active Substance: FEXOFENADINE HYDROCHLORIDE
     Dosage: 60 MILLIGRAM, QD
  6. ELOCON [Concomitant]
     Active Substance: MOMETASONE FUROATE
     Indication: Rash
  7. DARVOCET [DEXTROPROPOXYPHENE NAPSILATE;PARACETAMOL] [Concomitant]
     Indication: Back pain

REACTIONS (19)
  - Panic attack [Not Recovered/Not Resolved]
  - Anxiety [Not Recovered/Not Resolved]
  - Depression [Not Recovered/Not Resolved]
  - Joint dislocation [Unknown]
  - Face injury [Unknown]
  - Eye injury [Unknown]
  - Rotator cuff syndrome [Unknown]
  - Tendonitis [Unknown]
  - Neuropsychological symptoms [Not Recovered/Not Resolved]
  - Confusional state [Not Recovered/Not Resolved]
  - Fall [Unknown]
  - Synovial cyst [Unknown]
  - Haematoma [Unknown]
  - Joint injury [Unknown]
  - Sinusitis [Unknown]
  - Bronchitis [Unknown]
  - Head discomfort [Unknown]
  - Insomnia [Recovered/Resolved]
  - Feeling abnormal [Unknown]

NARRATIVE: CASE EVENT DATE: 19980101
